FAERS Safety Report 7419803-4 (Version None)
Quarter: 2011Q2

REPORT INFORMATION
  Report Type: 
  Country: None (occurrence: None)
  Receive Date: 20110413
  Receipt Date: 20110413
  Transmission Date: 20111010
  Serious: Yes (Disabling)
  Sender: FDA-Public Use
  Company Number: None

PATIENT
  Age: 23 Year
  Sex: Male
  Weight: 88.4514 kg

DRUGS (1)
  1. PROPECIA [Suspect]
     Indication: ALOPECIA
     Dosage: 1 MG ONCE PER DAY SWALLOWED
     Route: 048
     Dates: start: 20080201, end: 20080901

REACTIONS (4)
  - DYSURIA [None]
  - LIBIDO DECREASED [None]
  - ERECTILE DYSFUNCTION [None]
  - HORMONE LEVEL ABNORMAL [None]
